FAERS Safety Report 5587843-6 (Version None)
Quarter: 2008Q1

REPORT INFORMATION
  Report Type: 
  Country: None (occurrence: None)
  Receive Date: 20080111
  Receipt Date: 20080108
  Transmission Date: 20080703
  Serious: Yes (Hospitalization)
  Sender: FDA-Public Use
  Company Number: DE-SP-2007-04249

PATIENT
  Sex: Male

DRUGS (1)
  1. IMMUCYST [Suspect]
     Indication: BLADDER CANCER
     Route: 043
     Dates: start: 20060904, end: 20061009

REACTIONS (4)
  - BLADDER PAIN [None]
  - MICTURITION URGENCY [None]
  - PAIN [None]
  - URETHRAL PAIN [None]
